FAERS Safety Report 10188037 (Version 1)
Quarter: 2014Q2

REPORT INFORMATION
  Report Type: Spontaneous
  Country: US (occurrence: None)
  Receive Date: 20140521
  Receipt Date: 20140521
  Transmission Date: 20141212
  Serious: Yes (Death)
  Sender: FDA-Public Use
  Company Number: None

PATIENT
  Age: 23 Year
  Sex: Male
  Weight: 79.38 kg

DRUGS (1)
  1. CLOMIPHENE CITRATE [Suspect]
     Indication: SEXUAL DYSFUNCTION
     Dosage: Q.O.D, TAKEN BY MOUTH
     Route: 048
     Dates: start: 20040310, end: 20040707

REACTIONS (2)
  - Off label use [None]
  - Completed suicide [None]
